FAERS Safety Report 9885959 (Version 2)
Quarter: 2014Q1

REPORT INFORMATION
  Report Type: Spontaneous
  Country: GB (occurrence: GB)
  Receive Date: 20140210
  Receipt Date: 20140210
  Transmission Date: 20141002
  Serious: Yes (Other)
  Sender: FDA-Public Use
  Company Number: PHFR2014GB001285

PATIENT
  Sex: Male

DRUGS (3)
  1. CLOZARIL [Suspect]
     Dosage: UNK UKN, UNK
     Route: 048
     Dates: start: 20100624
  2. CLOZARIL [Suspect]
     Dosage: 250 MG, UNK
     Route: 048
  3. CLOZARIL [Suspect]
     Dosage: 375 MG, QD
     Route: 048

REACTIONS (5)
  - Loss of consciousness [Unknown]
  - Convulsion [Unknown]
  - Eating disorder [Unknown]
  - Weight fluctuation [Unknown]
  - Drug prescribing error [Unknown]
